FAERS Safety Report 7057623-3 (Version None)
Quarter: 2010Q4

REPORT INFORMATION
  Report Type: 
  Country: None (occurrence: None)
  Receive Date: 20101022
  Receipt Date: 20101018
  Transmission Date: 20110411
  Serious: Yes (Other)
  Sender: FDA-Public Use
  Company Number: CN-PFIZER INC-2010131576

PATIENT

DRUGS (1)
  1. ZYVOX [Suspect]

REACTIONS (4)
  - OLIGURIA [None]
  - PROTEIN URINE PRESENT [None]
  - PURPURA [None]
  - RASH [None]
